FAERS Safety Report 22308227 (Version 2)
Quarter: 2024Q2

REPORT INFORMATION
  Report Type: Spontaneous
  Country: US (occurrence: None)
  Receive Date: 20230511
  Receipt Date: 20240524
  Transmission Date: 20240716
  Serious: No
  Sender: FDA-Public Use
  Company Number: US-ROCHE-3217226

PATIENT
  Sex: Male
  Weight: 76.272 kg

DRUGS (5)
  1. OCREVUS [Suspect]
     Active Substance: OCRELIZUMAB
     Indication: Primary progressive multiple sclerosis
     Dosage: SUBSEQUENT DOSE ON 11/MAR/2022, THIRD DOSE WAS SUPPOSED TO BE A FULL DOSE ON 12/SEP/2022, BUT BECAUS
     Route: 042
     Dates: start: 20220225
  2. OCREVUS [Suspect]
     Active Substance: OCRELIZUMAB
     Dosage: THIRD DOSE WAS SUPPOSED TO BE A FULL DOSE ON 12/SEP/2022, BUT BECAUSE THE INFUSION CENTER SCREWED UP
     Route: 042
     Dates: start: 20220311
  3. OCREVUS [Suspect]
     Active Substance: OCRELIZUMAB
     Dosage: THIRD DOSE WAS SUPPOSED TO BE A FULL DOSE ON 12/SEP/2022, BUT BECAUSE THE INFUSION CENTER SCREWED UP
     Route: 042
     Dates: start: 20221020
  4. FAMOTIDINE [Concomitant]
     Active Substance: FAMOTIDINE
     Indication: Crohn^s disease
     Route: 048
  5. BUDESONIDE [Concomitant]
     Active Substance: BUDESONIDE
     Indication: Crohn^s disease
     Route: 048

REACTIONS (2)
  - Oropharyngeal pain [Recovered/Resolved]
  - Pharyngeal swelling [Unknown]

NARRATIVE: CASE EVENT DATE: 20220311
